FAERS Safety Report 7506776-9 (Version None)
Quarter: 2011Q2

REPORT INFORMATION
  Report Type: 
  Country: None (occurrence: None)
  Receive Date: 20110526
  Receipt Date: 20110513
  Transmission Date: 20111010
  Serious: Yes (Hospitalization)
  Sender: FDA-Public Use
  Company Number: A0779020A

PATIENT
  Age: 59 Year
  Sex: Female
  Weight: 93.6 kg

DRUGS (18)
  1. ADVICOR [Concomitant]
  2. PLAVIX [Concomitant]
  3. LISINOPRIL [Concomitant]
  4. AVANDIA [Suspect]
     Dosage: 4MG UNKNOWN
     Route: 065
     Dates: start: 20000101, end: 20070501
  5. CRESTOR [Concomitant]
  6. TRICOR [Concomitant]
  7. METOPROLOL TARTRATE [Concomitant]
  8. DYNACIRC CR [Concomitant]
  9. GLYBURIDE [Concomitant]
  10. IMDUR [Concomitant]
  11. ISOSORBIDE DINITRATE [Concomitant]
  12. AVANDARYL [Suspect]
     Route: 065
  13. METFORMIN HCL [Concomitant]
  14. AVANDAMET [Suspect]
     Route: 065
  15. NORVASC [Concomitant]
  16. ASPIRIN [Concomitant]
  17. NIASPAN [Concomitant]
  18. LOPRESSOR [Concomitant]

REACTIONS (3)
  - CARDIAC FAILURE CONGESTIVE [None]
  - MYOCARDIAL INFARCTION [None]
  - MYOCARDIAL ISCHAEMIA [None]
